FAERS Safety Report 9680538 (Version 1)
Quarter: 2013Q4

REPORT INFORMATION
  Report Type: Spontaneous
  Country: US (occurrence: US)
  Receive Date: 20131111
  Receipt Date: 20131111
  Transmission Date: 20140711
  Serious: No
  Sender: FDA-Public Use
  Company Number: US-PFIZER INC-2013319819

PATIENT
  Age: 80 Year
  Sex: Female

DRUGS (1)
  1. CELEBREX [Suspect]
     Indication: BURSITIS
     Dosage: 200 MG
     Route: 048
     Dates: start: 20131106

REACTIONS (5)
  - Off label use [Unknown]
  - Burning sensation [Unknown]
  - Feeling hot [Unknown]
  - Flushing [Unknown]
  - Erythema [Unknown]
